FAERS Safety Report 22151389 (Version 2)
Quarter: 2023Q2

REPORT INFORMATION
  Report Type: Spontaneous
  Country: FR (occurrence: FR)
  Receive Date: 20230329
  Receipt Date: 20230412
  Transmission Date: 20230722
  Serious: Yes (Hospitalization)
  Sender: FDA-Public Use
  Company Number: None

PATIENT
  Age: 59 Year
  Sex: Male

DRUGS (12)
  1. VALIUM [Suspect]
     Active Substance: DIAZEPAM
     Indication: Poisoning deliberate
     Dosage: ; IN TOTAL
     Dates: start: 20230227, end: 20230227
  2. VALPROATE SODIUM [Suspect]
     Active Substance: VALPROATE SODIUM
     Indication: Epilepsy
  3. CETIRIZINE HYDROCHLORIDE [Suspect]
     Active Substance: CETIRIZINE HYDROCHLORIDE
     Indication: Poisoning deliberate
     Dosage: ; IN TOTAL
     Dates: start: 20230227, end: 20230227
  4. STROMECTOL [Suspect]
     Active Substance: IVERMECTIN
     Indication: Poisoning deliberate
     Dosage: ; IN TOTAL
     Dates: start: 20230227, end: 20230227
  5. LOPERAMIDE HYDROCHLORIDE [Suspect]
     Active Substance: LOPERAMIDE HYDROCHLORIDE
     Indication: Poisoning deliberate
     Dosage: ; IN TOTAL
     Dates: start: 20230227, end: 20230227
  6. PHLOROGLUCINOL [Suspect]
     Active Substance: PHLOROGLUCINOL
     Indication: Poisoning deliberate
     Dosage: ; IN TOTAL
     Dates: start: 20230227, end: 20230227
  7. LOXEN [Concomitant]
     Indication: Product used for unknown indication
  8. FENOFIBRATE [Concomitant]
     Active Substance: FENOFIBRATE
     Indication: Product used for unknown indication
  9. MIRTAZAPINE [Concomitant]
     Active Substance: MIRTAZAPINE
     Indication: Product used for unknown indication
  10. TAHOR [Concomitant]
     Active Substance: ATORVASTATIN CALCIUM
     Indication: Product used for unknown indication
  11. PANTOPRAZOLE [Concomitant]
     Active Substance: PANTOPRAZOLE
     Indication: Product used for unknown indication
  12. PAROXETINE HYDROCHLORIDE [Concomitant]
     Active Substance: PAROXETINE HYDROCHLORIDE
     Indication: Product used for unknown indication

REACTIONS (3)
  - Poisoning deliberate [Recovered/Resolved]
  - Coma [Recovered/Resolved]
  - Hyperammonaemia [Recovered/Resolved]

NARRATIVE: CASE EVENT DATE: 20230227
